FAERS Safety Report 10919148 (Version 1)
Quarter: 2015Q1

REPORT INFORMATION
  Report Type: Other
  Country: DK (occurrence: DK)
  Receive Date: 20150316
  Receipt Date: 20150316
  Transmission Date: 20150721
  Serious: Yes (Disabling)
  Sender: FDA-Public Use
  Company Number: DK-MYLANLABS-2015M1007024

PATIENT

DRUGS (4)
  1. TAMOXIFEN CITRATE. [Suspect]
     Active Substance: TAMOXIFEN CITRATE
     Indication: INVASIVE DUCTAL BREAST CARCINOMA
     Dosage: UNK
  2. SENDOXAN [Interacting]
     Active Substance: CYCLOPHOSPHAMIDE
     Indication: INVASIVE DUCTAL BREAST CARCINOMA
     Dosage: UNK
     Dates: start: 20101102, end: 20101215
  3. TAXOTERE [Interacting]
     Active Substance: DOCETAXEL
     Indication: INVASIVE DUCTAL BREAST CARCINOMA
     Dosage: DOSIS: 100 MG/M2 HVER 3. UGE, STYRKE: 170
     Dates: start: 20110106, end: 20110218
  4. EPIRUBICIN ^ACTAVIS^ [Interacting]
     Active Substance: EPIRUBICIN
     Indication: INVASIVE DUCTAL BREAST CARCINOMA
     Dosage: STYRKE: 110 MG
     Route: 042
     Dates: start: 20101102, end: 20101215

REACTIONS (9)
  - Balance disorder [Not Recovered/Not Resolved]
  - Headache [Unknown]
  - Disturbance in attention [Not Recovered/Not Resolved]
  - Dizziness [Not Recovered/Not Resolved]
  - Brain injury [Unknown]
  - Fatigue [Not Recovered/Not Resolved]
  - Drug interaction [Unknown]
  - Visual impairment [Unknown]
  - Vertigo [Not Recovered/Not Resolved]

NARRATIVE: CASE EVENT DATE: 20110301
